FAERS Safety Report 6474573-1 (Version None)
Quarter: 2009Q4

REPORT INFORMATION
  Report Type: 
  Country: None (occurrence: None)
  Receive Date: 20091201
  Receipt Date: 20091116
  Transmission Date: 20100525
  Serious: Yes (Life-Threatening, Hospitalization, Other)
  Sender: FDA-Public Use
  Company Number: IDA-00288

PATIENT
  Sex: Female

DRUGS (4)
  1. INDERAL [Suspect]
     Indication: SUPRAVENTRICULAR TACHYCARDIA
     Dosage: .9 MG TID / .7 MG QID / .9 MG QID / 1 MG, ORAL FORMULATION: TABLET / ORAL
     Route: 048
     Dates: start: 20091014, end: 20091015
  2. INDERAL [Suspect]
     Indication: SUPRAVENTRICULAR TACHYCARDIA
     Dosage: .9 MG TID / .7 MG QID / .9 MG QID / 1 MG, ORAL FORMULATION: TABLET / ORAL
     Route: 048
     Dates: start: 20091016, end: 20091018
  3. INDERAL [Suspect]
     Indication: SUPRAVENTRICULAR TACHYCARDIA
     Dosage: .9 MG TID / .7 MG QID / .9 MG QID / 1 MG, ORAL FORMULATION: TABLET / ORAL
     Route: 048
     Dates: start: 20091019, end: 20091024
  4. INDERAL [Suspect]
     Indication: SUPRAVENTRICULAR TACHYCARDIA
     Dosage: .9 MG TID / .7 MG QID / .9 MG QID / 1 MG, ORAL FORMULATION: TABLET / ORAL
     Route: 048
     Dates: start: 20091025, end: 20091101

REACTIONS (5)
  - ALANINE AMINOTRANSFERASE INCREASED [None]
  - ASPARTATE AMINOTRANSFERASE INCREASED [None]
  - BLOOD LACTATE DEHYDROGENASE INCREASED [None]
  - CYTOMEGALOVIRUS INFECTION [None]
  - LIVER DISORDER [None]
